FAERS Safety Report 24818724 (Version 1)
Quarter: 2025Q1

REPORT INFORMATION
  Report Type: Spontaneous
  Country: US (occurrence: None)
  Receive Date: 20250107
  Receipt Date: 20250107
  Transmission Date: 20250409
  Serious: Yes (Hospitalization)
  Sender: FDA-CTU
  Company Number: None

PATIENT
  Age: 11 Month
  Sex: Female

DRUGS (2)
  1. SYNAGIS [Suspect]
     Active Substance: PALIVIZUMAB
     Indication: Ventricular septal defect
     Dosage: 15MG PER KG 1 TIME PER MONTH INTO THE MUSCLE
     Route: 050
     Dates: start: 202312
  2. SYNAGIS [Suspect]
     Active Substance: PALIVIZUMAB
     Indication: Ventricular septal defect
     Dosage: 15MG PER KG 1 TIME PER MONTH INTO THE MUSCLE?OTHER QUANTITY : 15MG PER KG;?FREQUENCY : MONTHLY;?
     Route: 030
     Dates: start: 202401

REACTIONS (2)
  - Intestinal obstruction [None]
  - Respiratory tract infection [None]

NARRATIVE: CASE EVENT DATE: 20240624
